FAERS Safety Report 23020666 (Version 1)
Quarter: 2023Q4

REPORT INFORMATION
  Report Type: Spontaneous
  Country: US (occurrence: None)
  Receive Date: 20231003
  Receipt Date: 20231003
  Transmission Date: 20240110
  Serious: Yes (Death, Other)
  Sender: FDA-Public Use
  Company Number: US-ENDO-CASE-0029174

PATIENT

DRUGS (1)
  1. PERCOCET [Suspect]
     Active Substance: ACETAMINOPHEN\OXYCODONE HYDROCHLORIDE

REACTIONS (6)
  - Death [Fatal]
  - Overdose [Unknown]
  - Drug withdrawal syndrome neonatal [Unknown]
  - Dependence [Unknown]
  - Withdrawal syndrome [Unknown]
  - Foetal exposure during pregnancy [Unknown]
